FAERS Safety Report 9883576 (Version 1)
Quarter: 2014Q1

REPORT INFORMATION
  Report Type: Report from Study
  Country: US (occurrence: US)
  Receive Date: 20140210
  Receipt Date: 20140210
  Transmission Date: 20141002
  Serious: Yes (Death)
  Sender: FDA-Public Use
  Company Number: US-ROCHE-1327708

PATIENT
  Sex: Male
  Weight: 85.81 kg

DRUGS (6)
  1. AVASTIN [Suspect]
     Indication: GALLBLADDER CANCER
     Dosage: RECEIVED ON 21/JUL/2011 (C1 D1) AND ON 04/AUG/2011 (C1 D14).
     Route: 042
  2. AVASTIN [Suspect]
     Dosage: RECEIVED ON 18/AUG/2011, 01/SEP/2011, 15/SEP/2011, 29/SEP/2011, 13/OCT/2011 AND ON 31/DEC/2011.
     Route: 042
  3. GEMZAR [Concomitant]
     Route: 042
  4. DECADRON [Concomitant]
     Route: 042
  5. ALOXI [Concomitant]
     Route: 042
  6. MORPHINE [Concomitant]
     Indication: ABDOMINAL PAIN
     Route: 042

REACTIONS (4)
  - Death [Fatal]
  - Weight increased [Unknown]
  - Hypertension [Unknown]
  - Abdominal pain [Unknown]
